FAERS Safety Report 15341422 (Version 2)
Quarter: 2018Q3

REPORT INFORMATION
  Report Type: Report from Study
  Country: None (occurrence: FR)
  Receive Date: 20180901
  Receipt Date: 20180907
  Transmission Date: 20181010
  Serious: Yes (Hospitalization, Other)
  Sender: FDA-Public Use
  Company Number: FR-ABBVIE-18S-056-2407006-00

PATIENT
  Age: 74 Year
  Sex: Male

DRUGS (1)
  1. DUODOPA [Suspect]
     Active Substance: CARBIDOPA\LEVODOPA
     Indication: PARKINSON^S DISEASE
     Dosage: MD:6ML; CD: 7ML/HR; ED: 4.6ML
     Route: 050
     Dates: start: 20170202

REACTIONS (8)
  - Tremor [Unknown]
  - On and off phenomenon [Unknown]
  - Disturbance in attention [Not Recovered/Not Resolved]
  - Tooth loss [Not Recovered/Not Resolved]
  - Motor dysfunction [Not Recovered/Not Resolved]
  - Stress [Unknown]
  - Dyspnoea [Unknown]
  - Syncope [Recovered/Resolved]

NARRATIVE: CASE EVENT DATE: 2017
